FAERS Safety Report 8595411-7 (Version None)
Quarter: 2012Q3

REPORT INFORMATION
  Report Type: 
  Country: None (occurrence: None)
  Receive Date: 20120807
  Receipt Date: 20120807
  Transmission Date: 20120928
  Serious: Yes (Life-Threatening, Hospitalization)
  Sender: FDA-Public Use
  Company Number: None

PATIENT
  Age: 61 Year
  Sex: Female
  Weight: 71.2 kg

DRUGS (4)
  1. CARBOPLATIN [Suspect]
     Indication: MALIGNANT PERITONEAL NEOPLASM
     Dosage: AUC - 4 MG/ML*MIN IV Q.3 WK
     Route: 042
     Dates: start: 20120430
  2. MAGNESIUM OXIDE [Concomitant]
  3. ZOLPIDEM [Concomitant]
     Dosage: OLAPARIB PKPD
  4. ESCITALOPRAM [Concomitant]

REACTIONS (9)
  - UNRESPONSIVE TO STIMULI [None]
  - HYPOTENSION [None]
  - PRURITUS [None]
  - INFUSION RELATED REACTION [None]
  - VOMITING [None]
  - TACHYCARDIA [None]
  - STRIDOR [None]
  - TORTICOLLIS [None]
  - NAUSEA [None]
